FAERS Safety Report 9252019 (Version 3)
Quarter: 2014Q1

REPORT INFORMATION
  Report Type: Spontaneous
  Country: US (occurrence: US)
  Receive Date: 20130424
  Receipt Date: 20140212
  Transmission Date: 20141002
  Serious: Yes (Disabling, Other)
  Sender: FDA-Public Use
  Company Number: US-ASTRAZENECA-2013SE27364

PATIENT
  Age: 46 Year
  Sex: Female
  Weight: 112 kg

DRUGS (38)
  1. NEXIUM [Suspect]
     Indication: VOCAL CORD THICKENING
     Route: 048
  2. NEXIUM [Suspect]
     Indication: GASTROOESOPHAGEAL REFLUX DISEASE
     Route: 048
  3. NEXIUM [Suspect]
     Indication: VOCAL CORD THICKENING
     Route: 048
     Dates: start: 20050210
  4. NEXIUM [Suspect]
     Indication: GASTROOESOPHAGEAL REFLUX DISEASE
     Route: 048
     Dates: start: 20050210
  5. NEXIUM [Suspect]
     Indication: VOCAL CORD THICKENING
     Route: 048
     Dates: start: 20110222
  6. NEXIUM [Suspect]
     Indication: GASTROOESOPHAGEAL REFLUX DISEASE
     Route: 048
     Dates: start: 20110222
  7. PRILOSEC [Suspect]
     Indication: GASTROOESOPHAGEAL REFLUX DISEASE
     Route: 048
  8. PREVACID [Concomitant]
     Indication: GASTROOESOPHAGEAL REFLUX DISEASE
  9. ACIPHEX [Concomitant]
     Indication: GASTROOESOPHAGEAL REFLUX DISEASE
  10. TUMS [Concomitant]
     Dosage: AS NEEDED
  11. ZANTAC [Concomitant]
  12. PEPCID [Concomitant]
  13. MYLANTA [Concomitant]
  14. SYNTHROID [Concomitant]
     Indication: THYROID DISORDER
     Dosage: 250 MICROGRAMS
  15. ADIPEX [Concomitant]
     Dates: start: 20060822
  16. XENICAL [Concomitant]
     Dates: start: 20060822
  17. ZAROXOLYN [Concomitant]
     Dates: start: 20050701
  18. INDERAL [Concomitant]
     Dates: start: 20050701
  19. K-DUR [Concomitant]
     Dates: start: 20050701
  20. LASIX [Concomitant]
     Dates: start: 20050701
  21. GLUCOPHAGE [Concomitant]
     Dates: start: 20050701
  22. MERIDIA [Concomitant]
     Dates: start: 20040204
  23. CLARINEX [Concomitant]
     Dates: start: 20030531
  24. VIOXX [Concomitant]
     Dates: start: 20021217
  25. FLEXERIL [Concomitant]
     Dates: start: 20021031
  26. LISINOPRIL [Concomitant]
  27. ALLOPURINOL [Concomitant]
  28. AMBIEN [Concomitant]
  29. PANTOPRAZOLE SOD [Concomitant]
     Dates: start: 20090130
  30. HYDROCHLOROTHIAZIDE [Concomitant]
     Dates: start: 20090330
  31. ATENOLOL [Concomitant]
     Dates: start: 20090512
  32. SERTRALINE HYDROCHLORIDE [Concomitant]
  33. CYMBALTA [Concomitant]
     Dates: start: 20110909
  34. CELEBREX [Concomitant]
     Dates: start: 20090603
  35. TOPAMAX [Concomitant]
     Dates: start: 20080521
  36. LIALDA [Concomitant]
     Route: 048
     Dates: start: 20080414
  37. ALLEGRA [Concomitant]
  38. PROTONIX [Concomitant]
     Indication: GASTROOESOPHAGEAL REFLUX DISEASE

REACTIONS (11)
  - Obesity [Unknown]
  - Hypothyroidism [Unknown]
  - Ankle fracture [Unknown]
  - Osteoporosis [Unknown]
  - Bone disorder [Unknown]
  - Hyperthyroidism [Unknown]
  - Weight increased [Unknown]
  - Foot fracture [Unknown]
  - Limb injury [Unknown]
  - Joint injury [Unknown]
  - Emotional distress [Unknown]
